FAERS Safety Report 16756309 (Version 2)
Quarter: 2019Q3

REPORT INFORMATION
  Report Type: Report from Study
  Country: US (occurrence: US)
  Receive Date: 20190829
  Receipt Date: 20190926
  Transmission Date: 20191005
  Serious: Yes (Death, Life-Threatening, Hospitalization)
  Sender: FDA-Public Use
  Company Number: US-PFIZER INC-2019366111

PATIENT
  Age: 16 Year
  Sex: Male
  Weight: 115.9 kg

DRUGS (7)
  1. DOXORUBICIN HCL [Suspect]
     Active Substance: DOXORUBICIN HYDROCHLORIDE
     Indication: ACUTE LYMPHOCYTIC LEUKAEMIA
     Dosage: 61 MG, ONCE (1, 8, 15) OF DELAYED INTENSIFICATION
     Route: 042
     Dates: start: 20190725, end: 20190801
  2. INCB018424 [Suspect]
     Active Substance: RUXOLITINIB
     Indication: ACUTE LYMPHOCYTIC LEUKAEMIA
     Dosage: 100 MG, BID  (14 DAYS ON 14 DAYS OFF)
     Route: 048
     Dates: start: 20190221, end: 20190806
  3. DEXAMETHASONE. [Suspect]
     Active Substance: DEXAMETHASONE
     Indication: ACUTE LYMPHOCYTIC LEUKAEMIA
     Dosage: 12 MG, BID (DAYS 1-7 AND 15-21)
     Route: 048
     Dates: start: 20190725, end: 20190731
  4. URSODIOL. [Concomitant]
     Active Substance: URSODIOL
     Dosage: UNK
     Dates: start: 20190215
  5. ACYCLOVIR. [Suspect]
     Active Substance: ACYCLOVIR
     Dosage: UNK
     Dates: start: 20190807
  6. SIMVASTATIN. [Concomitant]
     Active Substance: SIMVASTATIN
     Dosage: UNK
     Dates: start: 20190603, end: 20190806
  7. VINCRISTINE SULFATE. [Suspect]
     Active Substance: VINCRISTINE SULFATE
     Indication: ACUTE LYMPHOCYTIC LEUKAEMIA
     Dosage: 2 MG, ONCE, (DAYS 1, 8, 15)
     Route: 042
     Dates: start: 20190114, end: 20190801

REACTIONS (5)
  - Hypoxia [Not Recovered/Not Resolved]
  - Multiple organ dysfunction syndrome [Fatal]
  - Varicella zoster virus infection [Not Recovered/Not Resolved]
  - Abdominal pain [Not Recovered/Not Resolved]
  - Acute kidney injury [Not Recovered/Not Resolved]

NARRATIVE: CASE EVENT DATE: 20190806
